FAERS Safety Report 8668795 (Version 2)
Quarter: 2012Q4

REPORT INFORMATION
  Report Type: Report from Study
  Country: US (occurrence: US)
  Receive Date: 20120717
  Receipt Date: 20121128
  Transmission Date: 20130627
  Serious: Yes (Other)
  Sender: FDA-Public Use
  Company Number: US-US-EMD SERONO, INC.-7146755

PATIENT
  Sex: Female

DRUGS (6)
  1. REBIF [Suspect]
     Indication: MULTIPLE SCLEROSIS
     Route: 058
     Dates: start: 20090710, end: 20121105
  2. CYMBALTA [Concomitant]
     Indication: NEURALGIA
  3. CYMBALTA [Concomitant]
     Indication: DEPRESSION
  4. AMBIEN [Concomitant]
     Indication: SLEEP DISORDER
  5. POLYETHYLENE GLYCOL [Concomitant]
     Indication: CONSTIPATION
  6. MULTIVITAMIN [Concomitant]
     Indication: VITAMIN SUPPLEMENTATION

REACTIONS (5)
  - Pituitary tumour [Not Recovered/Not Resolved]
  - Fall [Not Recovered/Not Resolved]
  - Hypothyroidism [Not Recovered/Not Resolved]
  - Liver function test abnormal [Recovered/Resolved]
  - Depression [Not Recovered/Not Resolved]
